FAERS Safety Report 10112755 (Version 2)
Quarter: 2014Q2

REPORT INFORMATION
  Report Type: Spontaneous
  Country: US (occurrence: US)
  Receive Date: 20140425
  Receipt Date: 20140425
  Transmission Date: 20141212
  Serious: Yes (Other)
  Sender: FDA-Public Use
  Company Number: US-AMGEN INC.-USASP2014006133

PATIENT
  Age: 88 Year
  Sex: Male

DRUGS (1)
  1. PROCRIT [Suspect]
     Indication: NEPHROGENIC ANAEMIA
     Dosage: 20000 UNIT, ONCE A WEEK
     Route: 058
     Dates: start: 201301

REACTIONS (1)
  - Laboratory test abnormal [Unknown]
